FAERS Safety Report 16852176 (Version 1)
Quarter: 2019Q3

REPORT INFORMATION
  Report Type: Report from Study
  Country: US (occurrence: US)
  Receive Date: 20190925
  Receipt Date: 20190925
  Transmission Date: 20191005
  Serious: Yes (Other)
  Sender: FDA-Public Use
  Company Number: PHEH2019US039471

PATIENT
  Sex: Male

DRUGS (1)
  1. COSENTYX [Suspect]
     Active Substance: SECUKINUMAB
     Indication: PSORIATIC ARTHROPATHY
     Dosage: 300 MG, QW (QW FOR 5 WEEKS, THEN Q4W)
     Route: 058
     Dates: start: 20190903

REACTIONS (6)
  - Nausea [Unknown]
  - Injection site bruising [Unknown]
  - Asthenia [Unknown]
  - Fatigue [Unknown]
  - Heart rate decreased [Unknown]
  - Arrhythmia [Unknown]
